FAERS Safety Report 20440549 (Version 1)
Quarter: 2022Q1

REPORT INFORMATION
  Report Type: Spontaneous
  Country: US (occurrence: US)
  Receive Date: 20220207
  Receipt Date: 20220207
  Transmission Date: 20220423
  Serious: No
  Sender: FDA-Public Use
  Company Number: US-009507513-2201USA006069

PATIENT
  Age: 92 Year
  Sex: Male

DRUGS (1)
  1. KEYTRUDA [Suspect]
     Active Substance: PEMBROLIZUMAB
     Indication: Transitional cell carcinoma
     Dosage: 2 MILLIGRAM/KILOGRAM, Q3W; 213 D
     Route: 042
     Dates: start: 201610

REACTIONS (2)
  - Therapy partial responder [Unknown]
  - Pruritus [Unknown]

NARRATIVE: CASE EVENT DATE: 20160101
